FAERS Safety Report 7395031-6 (Version None)
Quarter: 2011Q2

REPORT INFORMATION
  Report Type: 
  Country: None (occurrence: None)
  Receive Date: 20110405
  Receipt Date: 20110323
  Transmission Date: 20111010
  Serious: Yes (Other)
  Sender: FDA-Public Use
  Company Number: PL-ACTELION-A-CH2010-36467

PATIENT
  Sex: Female

DRUGS (1)
  1. TRACLEER [Suspect]
     Indication: DRUG EXPOSURE DURING PREGNANCY
     Dosage: 62.5 MG, BID
     Route: 064
     Dates: start: 20090727, end: 20090727

REACTIONS (3)
  - DRUG EXPOSURE DURING PREGNANCY [None]
  - BREAST FEEDING [None]
  - NORMAL NEWBORN [None]
